FAERS Safety Report 14333571 (Version 2)
Quarter: 2018Q1

REPORT INFORMATION
  Report Type: Spontaneous
  Country: FR (occurrence: FR)
  Receive Date: 20171228
  Receipt Date: 20180112
  Transmission Date: 20180509
  Serious: Yes (Life-Threatening, Hospitalization, Other)
  Sender: FDA-Public Use
  Company Number: FR-MYLANLABS-2017M1082508

PATIENT
  Age: 49 Year
  Sex: Male
  Weight: 104 kg

DRUGS (8)
  1. PAROXETINE. [Suspect]
     Active Substance: PAROXETINE
     Indication: TOXICITY TO VARIOUS AGENTS
  2. ABILIFY [Suspect]
     Active Substance: ARIPIPRAZOLE
     Indication: PRODUCT USED FOR UNKNOWN INDICATION
     Dosage: 810 MG, UNK
     Route: 048
     Dates: start: 20160505, end: 20160505
  3. ABILIFY [Suspect]
     Active Substance: ARIPIPRAZOLE
     Indication: TOXICITY TO VARIOUS AGENTS
  4. TERCIAN [Suspect]
     Active Substance: CYAMEMAZINE
     Indication: TOXICITY TO VARIOUS AGENTS
  5. PAROXETINE. [Suspect]
     Active Substance: PAROXETINE
     Indication: PRODUCT USED FOR UNKNOWN INDICATION
     Dosage: 560 MG, UNK
     Route: 048
     Dates: start: 20160505, end: 20160505
  6. ALPRAZOLAM. [Suspect]
     Active Substance: ALPRAZOLAM
     Indication: PRODUCT USED FOR UNKNOWN INDICATION
     Dosage: 750 MG, UNK
     Route: 048
     Dates: start: 20160505, end: 20160505
  7. TERCIAN [Suspect]
     Active Substance: CYAMEMAZINE
     Indication: PRODUCT USED FOR UNKNOWN INDICATION
     Dosage: 6 G, UNK
     Route: 048
     Dates: start: 20160505, end: 20160505
  8. ALPRAZOLAM. [Suspect]
     Active Substance: ALPRAZOLAM
     Indication: TOXICITY TO VARIOUS AGENTS

REACTIONS (4)
  - Toxicity to various agents [Recovered/Resolved]
  - Intentional overdose [Unknown]
  - Pneumonia aspiration [Recovered/Resolved]
  - Coma [Recovered/Resolved]

NARRATIVE: CASE EVENT DATE: 20160505
